FAERS Safety Report 13441277 (Version 5)
Quarter: 2017Q4

REPORT INFORMATION
  Report Type: Report from Study
  Country: US (occurrence: US)
  Receive Date: 20170413
  Receipt Date: 20171205
  Transmission Date: 20180320
  Serious: Yes (Other)
  Sender: FDA-Public Use
  Company Number: US-ROCHE-1918692

PATIENT
  Age: 11 Year
  Sex: Male
  Weight: 41.3 kg

DRUGS (4)
  1. ZOLOFT [Concomitant]
     Active Substance: SERTRALINE HYDROCHLORIDE
  2. NUTROPIN AQ [Suspect]
     Active Substance: SOMATROPIN
     Indication: GROWTH HORMONE DEFICIENCY
     Dosage: 5 MG/ML (NUSPIN 20 MG)
     Route: 058
     Dates: start: 201501
  3. NUTROPIN AQ [Suspect]
     Active Substance: SOMATROPIN
     Indication: BODY HEIGHT BELOW NORMAL
     Route: 058
  4. NUTROPIN AQ [Suspect]
     Active Substance: SOMATROPIN
     Indication: GROWTH FAILURE
     Dosage: 0.26 MG/KG/WEEK
     Route: 058

REACTIONS (10)
  - Attention deficit/hyperactivity disorder [Unknown]
  - Arthralgia [Recovered/Resolved]
  - Weight gain poor [Not Recovered/Not Resolved]
  - Blood thyroid stimulating hormone increased [Not Recovered/Not Resolved]
  - Osteochondrosis [Recovering/Resolving]
  - Dysphagia [Recovered/Resolved]
  - Injection site bruising [Recovered/Resolved]
  - Anxiety [Recovered/Resolved]
  - Impulsive behaviour [Unknown]
  - Breast enlargement [Unknown]

NARRATIVE: CASE EVENT DATE: 20150512
